APPROVED DRUG PRODUCT: VALSARTAN
Active Ingredient: VALSARTAN
Strength: 160MG
Dosage Form/Route: TABLET;ORAL
Application: A205347 | Product #003 | TE Code: AB
Applicant: SQUARE PHARMACEUTICALS PLC
Approved: Apr 9, 2018 | RLD: No | RS: No | Type: RX